FAERS Safety Report 9220373 (Version 1)
Quarter: 2013Q1

REPORT INFORMATION
  Report Type: Spontaneous
  Country: US (occurrence: None)
  Receive Date: 20120830
  Receipt Date: 20120830
  Transmission Date: 20140127
  Serious: Yes (Other)
  Sender: FDA-Public Use
  Company Number: PHEH2011US02808

PATIENT
  Age: 76 Year
  Sex: Female

DRUGS (1)
  1. SANDOSTATIN [Suspect]
     Route: 050

REACTIONS (1)
  - Bradycardia [None]
